FAERS Safety Report 7830288-6 (Version None)
Quarter: 2011Q4

REPORT INFORMATION
  Report Type: 
  Country: None (occurrence: None)
  Receive Date: 20111021
  Receipt Date: 20111014
  Transmission Date: 20120403
  Serious: Yes (Other)
  Sender: FDA-Public Use
  Company Number: JP-JNJFOC-20111007201

PATIENT

DRUGS (4)
  1. TRAMADOL HYDROCHLORIDE/ACETAMINOPHEN [Suspect]
     Indication: PRODUCT USED FOR UNKNOWN INDICATION
     Route: 048
  2. MOBIC [Concomitant]
     Route: 048
  3. DAI-KENCHU-TO [Concomitant]
     Route: 048
  4. ALENDRONATE SODIUM [Concomitant]
     Route: 048

REACTIONS (4)
  - DYSPHONIA [None]
  - PHARYNGEAL OEDEMA [None]
  - APHONIA [None]
  - SWOLLEN TONGUE [None]
